FAERS Safety Report 6255523-X (Version None)
Quarter: 2009Q3

REPORT INFORMATION
  Report Type: 
  Country: None (occurrence: None)
  Receive Date: 20090702
  Receipt Date: 20090624
  Transmission Date: 20100115
  Serious: Yes (Hospitalization)
  Sender: FDA-Public Use
  Company Number: FR-AMGEN-US353398

PATIENT
  Sex: Male

DRUGS (2)
  1. ENBREL [Suspect]
     Indication: RHEUMATOID ARTHRITIS
     Route: 058
     Dates: start: 20050501, end: 20090301
  2. CORTANCYL [Concomitant]
     Indication: RHEUMATOID ARTHRITIS
     Route: 048

REACTIONS (3)
  - CONDITION AGGRAVATED [None]
  - LUNG SQUAMOUS CELL CARCINOMA STAGE UNSPECIFIED [None]
  - RHEUMATOID ARTHRITIS [None]
